FAERS Safety Report 13372739 (Version 1)
Quarter: 2017Q1

REPORT INFORMATION
  Report Type: Spontaneous
  Country: US (occurrence: US)
  Receive Date: 20170324
  Receipt Date: 20170324
  Transmission Date: 20170429
  Serious: Yes (Life-Threatening, Hospitalization, Disabling, Other)
  Sender: FDA-Public Use
  Company Number: None

PATIENT
  Age: 25 Year
  Sex: Male
  Weight: 92.25 kg

DRUGS (3)
  1. MEFLOQUINE [Suspect]
     Active Substance: MEFLOQUINE
     Indication: MALARIA PROPHYLAXIS
     Route: 048
     Dates: start: 20100701, end: 20100702
  2. ASENAPRINE (SAPHRIS) [Concomitant]
  3. PROZAC [Concomitant]
     Active Substance: FLUOXETINE HYDROCHLORIDE

REACTIONS (6)
  - Seizure [None]
  - Schizophrenia [None]
  - Paranoia [None]
  - Mental disorder [None]
  - Obsessive-compulsive disorder [None]
  - Delusion [None]

NARRATIVE: CASE EVENT DATE: 20130515
